FAERS Safety Report 21704555 (Version 3)
Quarter: 2022Q4

REPORT INFORMATION
  Report Type: Spontaneous
  Country: US (occurrence: US)
  Receive Date: 20221209
  Receipt Date: 20221214
  Transmission Date: 20230112
  Serious: Yes (Other)
  Sender: FDA-Public Use
  Company Number: US-SANOFI-01395337

PATIENT
  Age: 38 Year

DRUGS (1)
  1. DUPIXENT [Suspect]
     Active Substance: DUPILUMAB
     Indication: Eosinophilic oesophagitis
     Dosage: 300 MG, QW
     Route: 058
     Dates: start: 20221018

REACTIONS (5)
  - Arrhythmia [Unknown]
  - Injection site irritation [Unknown]
  - Pruritus [Unknown]
  - Rash [Unknown]
  - Injection site reaction [Unknown]

NARRATIVE: CASE EVENT DATE: 20221111
